FAERS Safety Report 7058464-3 (Version None)
Quarter: 2010Q4

REPORT INFORMATION
  Report Type: 
  Country: None (occurrence: None)
  Receive Date: 20101022
  Receipt Date: 20101014
  Transmission Date: 20110411
  Serious: Yes (Other)
  Sender: FDA-Public Use
  Company Number: GXKR2010US11633

PATIENT
  Age: 34 Year
  Sex: Male

DRUGS (2)
  1. PREDNISONE (NGX) [Suspect]
     Indication: ARTHRALGIA
     Dosage: INCREASED TO 10 MG/DAY
     Route: 065
  2. PREDNISONE (NGX) [Suspect]
     Dosage: 5 MG/DAY
     Route: 065

REACTIONS (2)
  - CHORIORETINOPATHY [None]
  - VISION BLURRED [None]
